FAERS Safety Report 25360929 (Version 3)
Quarter: 2025Q2

REPORT INFORMATION
  Report Type: Spontaneous
  Country: SE (occurrence: SE)
  Receive Date: 20250527
  Receipt Date: 20250619
  Transmission Date: 20250717
  Serious: Yes (Other)
  Sender: NOVO NORDISK
  Company Number: None

PATIENT
  Age: 65 Year
  Sex: Male
  Weight: 99 kg

DRUGS (1)
  1. OZEMPIC [Suspect]
     Active Substance: SEMAGLUTIDE
     Indication: Type 2 diabetes mellitus
     Dosage: 2 MG, QW
     Dates: start: 20240501

REACTIONS (4)
  - Dry mouth [Unknown]
  - Visual impairment [Unknown]
  - Dental caries [Unknown]
  - Dental caries [Unknown]

NARRATIVE: CASE EVENT DATE: 20250505
